FAERS Safety Report 5843176-1 (Version None)
Quarter: 2008Q3

REPORT INFORMATION
  Report Type: 
  Country: None (occurrence: None)
  Receive Date: 20080813
  Receipt Date: 20080730
  Transmission Date: 20090109
  Serious: Yes (Disabling)
  Sender: FDA-Public Use
  Company Number: PHBS2007IT20840

PATIENT
  Sex: Female

DRUGS (3)
  1. ZOMETA [Suspect]
     Indication: METASTASES TO BONE
     Dosage: 4 MG, QMO
     Route: 042
     Dates: start: 20050401, end: 20060801
  2. ZOMETA [Suspect]
     Dosage: 4 MG EVERY ONE MONTH
     Route: 042
     Dates: start: 20061001, end: 20070801
  3. GEMCITABINE [Concomitant]

REACTIONS (3)
  - BONE DEBRIDEMENT [None]
  - OSTEOLYSIS [None]
  - OSTEONECROSIS [None]
